FAERS Safety Report 5176863-1 (Version None)
Quarter: 2006Q4

REPORT INFORMATION
  Report Type: 
  Country: None (occurrence: None)
  Receive Date: 20061218
  Receipt Date: 20061214
  Transmission Date: 20070319
  Serious: Yes (Life-Threatening, Hospitalization, Other)
  Sender: FDA-Public Use
  Company Number: PHFR2006GB03649

PATIENT
  Age: 29 Year
  Sex: Male

DRUGS (9)
  1. CLOZAPINE [Suspect]
     Dosage: 800MG / DAY
     Route: 048
     Dates: start: 20051130
  2. AMISULPRIDE [Concomitant]
     Dosage: 50MG / DAY
     Route: 048
     Dates: start: 20061012
  3. AMOXICILLIN + CLAVULANATE POTASSIUM [Concomitant]
     Dosage: 625MG / DAY
     Route: 048
     Dates: start: 20061029, end: 20061108
  4. DIAZEPAM [Concomitant]
     Dosage: 2MG / DAY
     Route: 048
     Dates: start: 20060713
  5. DOCUSATE SODIUM [Concomitant]
     Dosage: 400MG / DAY
     Route: 048
     Dates: start: 20060829
  6. FLUOXETINE [Concomitant]
     Dosage: 40MG / DAY
     Route: 048
     Dates: start: 20060620
  7. HYOSCINE HBR HYT [Concomitant]
     Dosage: 900MCG / DAY
     Route: 048
     Dates: start: 20060310
  8. LACTULOSE [Concomitant]
     Dosage: 10ML / DAY
     Route: 048
     Dates: start: 20051203
  9. PROCYCLIDINE HYDROCHLORIDE 2MG TAB [Concomitant]
     Dosage: 30MG / DAY
     Route: 048
     Dates: start: 20051010

REACTIONS (3)
  - APPENDICECTOMY [None]
  - APPENDICITIS [None]
  - CONSTIPATION [None]
